FAERS Safety Report 10153745 (Version 7)
Quarter: 2014Q4

REPORT INFORMATION
  Report Type: Spontaneous
  Country: JP (occurrence: JP)
  Receive Date: 20140506
  Receipt Date: 20141016
  Transmission Date: 20150528
  Serious: Yes (Hospitalization)
  Sender: FDA-Public Use
  Company Number: JP-BEH-2014042138

PATIENT
  Age: 22 Year
  Sex: Male
  Weight: 53.7 kg

DRUGS (3)
  1. HIZENTRA [Suspect]
     Active Substance: HUMAN IMMUNOGLOBULIN G
     Route: 058
     Dates: start: 20140416, end: 20140416
  2. HIZENTRA [Suspect]
     Active Substance: HUMAN IMMUNOGLOBULIN G
     Dosage: DOSE: 6 G/BODY
     Route: 058
  3. HIZENTRA [Suspect]
     Active Substance: HUMAN IMMUNOGLOBULIN G
     Indication: IMMUNOGLOBULIN THERAPY
     Dosage: DOSE: 2 G/BODY
     Route: 058
     Dates: start: 20140430

REACTIONS (7)
  - Pyrexia [Recovered/Resolved]
  - Injection site swelling [Recovered/Resolved]
  - Administration site erythema [Recovered/Resolved]
  - Administration site pain [Recovered/Resolved]
  - Administration site infection [Recovered/Resolved]
  - C-reactive protein increased [Recovered/Resolved]
  - Administration site inflammation [Recovered/Resolved]

NARRATIVE: CASE EVENT DATE: 20140416
